FAERS Safety Report 12072203 (Version 1)
Quarter: 2016Q1

REPORT INFORMATION
  Report Type: Spontaneous
  Country: US (occurrence: None)
  Receive Date: 20160211
  Receipt Date: 20160211
  Transmission Date: 20160526
  Serious: No
  Sender: FDA-Public Use
  Company Number: None

PATIENT
  Age: 74 Year
  Sex: Female
  Weight: 49.7 kg

DRUGS (1)
  1. CISPLATIN. [Suspect]
     Active Substance: CISPLATIN
     Dates: end: 20160204

REACTIONS (8)
  - Diarrhoea [None]
  - Chills [None]
  - Abdominal pain [None]
  - Hypophagia [None]
  - Fatigue [None]
  - Night sweats [None]
  - Abdominal tenderness [None]
  - Syncope [None]

NARRATIVE: CASE EVENT DATE: 20160208
